FAERS Safety Report 7546730-4 (Version None)
Quarter: 2011Q2

REPORT INFORMATION
  Report Type: 
  Country: None (occurrence: None)
  Receive Date: 20110614
  Receipt Date: 20110606
  Transmission Date: 20111010
  Serious: Yes (Hospitalization)
  Sender: FDA-Public Use
  Company Number: A0921096A

PATIENT
  Age: 88 Year
  Sex: Female

DRUGS (6)
  1. ARIXTRA [Suspect]
     Indication: DEEP VEIN THROMBOSIS
     Dosage: 7.5MG PER DAY
     Route: 058
     Dates: start: 20100601
  2. FOLIC ACID [Concomitant]
  3. LISINOPRIL [Concomitant]
  4. GLIPIZIDE [Concomitant]
  5. XALATAN [Concomitant]
  6. TIMOLOL MALEATE [Concomitant]

REACTIONS (3)
  - DYSPNOEA [None]
  - PAIN IN EXTREMITY [None]
  - BONE DISORDER [None]
